FAERS Safety Report 4385440-1 (Version None)
Quarter: 2004Q2

REPORT INFORMATION
  Report Type: 
  Country: None (occurrence: None)
  Receive Date: 20040622
  Receipt Date: 20040607
  Transmission Date: 20050107
  Serious: Yes (Hospitalization)
  Sender: FDA-Public Use
  Company Number: S04-USA-00532-02

PATIENT
  Age: 28 Year
  Sex: Female
  Weight: 54.4316 kg

DRUGS (14)
  1. LEXAPRO [Suspect]
     Dosage: 30 MG QD PO
     Route: 048
     Dates: end: 20031208
  2. CONCERTA [Concomitant]
  3. AMBIEN [Concomitant]
  4. BUSPAR [Concomitant]
  5. WELLBUTRIN [Concomitant]
  6. METHYLPHENIDATE HCL [Concomitant]
  7. SEROQUEL [Concomitant]
  8. OMEPRAZOLE [Concomitant]
  9. TOPAMAX [Concomitant]
  10. RISPERDAL [Concomitant]
  11. ATIVAN [Concomitant]
  12. SYNTHROID [Concomitant]
  13. MIRTAZAPINE [Concomitant]
  14. ABILIFY  /USA/ (ARIPIRAZOLE) [Concomitant]

REACTIONS (12)
  - ALANINE AMINOTRANSFERASE INCREASED [None]
  - BLOOD CALCIUM INCREASED [None]
  - BLOOD OSMOLARITY INCREASED [None]
  - BLOOD POTASSIUM INCREASED [None]
  - BLOOD THYROID STIMULATING HORMONE DECREASED [None]
  - BODY TEMPERATURE INCREASED [None]
  - CONDITION AGGRAVATED [None]
  - NEPHRITIS INTERSTITIAL [None]
  - NEPHROPATHY [None]
  - RASH [None]
  - RENAL FAILURE [None]
  - WEIGHT INCREASED [None]
